FAERS Safety Report 18247502 (Version 5)
Quarter: 2024Q4

REPORT INFORMATION
  Report Type: Spontaneous
  Country: BG (occurrence: BG)
  Receive Date: 20200909
  Receipt Date: 20241010
  Transmission Date: 20250114
  Serious: Yes (Death)
  Sender: PFIZER
  Company Number: BG-ROCHE-2656505

PATIENT
  Age: 19 Year
  Sex: Male

DRUGS (34)
  1. METHYLPREDNISOLONE [Suspect]
     Active Substance: METHYLPREDNISOLONE
     Dosage: 40 MG / 2 ML
  2. SINEQUAN [Suspect]
     Active Substance: DOXEPIN HYDROCHLORIDE
     Dosage: 2 CAPS
     Dates: start: 2020
  3. ESOMEPRAZOLE SODIUM [Suspect]
     Active Substance: ESOMEPRAZOLE SODIUM
     Dosage: 40 MG, 2X1 VIAL
     Dates: start: 2020
  4. MEROPENEM [Suspect]
     Active Substance: MEROPENEM
     Dosage: 1 G, 3X1.0
  5. MEROPENEM [Suspect]
     Active Substance: MEROPENEM
     Dosage: 1000 MG, 3X1.0
  6. FAMOTIDINE [Suspect]
     Active Substance: FAMOTIDINE
     Dosage: 20 MG, 2X1 VIAL
     Dates: start: 2020
  7. BROMHEXINE [Suspect]
     Active Substance: BROMHEXINE
     Dosage: 4 MG 2 ML - AS PRESCRIBED
     Dates: start: 2020
  8. ALBUMIN HUMAN [Suspect]
     Active Substance: ALBUMIN HUMAN
     Dosage: 10 %
     Dates: start: 2020
  9. VITAMIN C [Suspect]
     Active Substance: ASCORBIC ACID
     Dosage: 10 5 5 ML 2X4 AMP
     Dates: start: 2020
  10. TOCILIZUMAB [Suspect]
     Active Substance: TOCILIZUMAB
     Indication: COVID-19 pneumonia
     Dosage: 200 MG/20ML
     Dates: start: 20200101
  11. TOCILIZUMAB [Suspect]
     Active Substance: TOCILIZUMAB
     Dosage: 400 MG/20 ML
     Dates: start: 2020
  12. DIETARY SUPPLEMENT\HERBALS\MILK THISTLE [Suspect]
     Active Substance: MILK THISTLE
     Dosage: 90 MG * 30 PCS. - ACCORDING TO THE SCHEME
     Dates: start: 2020
  13. DEXAMETHASONE [Suspect]
     Active Substance: DEXAMETHASONE
     Dosage: 4 MG/1 ML - 2X2 AMP
  14. CITICOLINE [Suspect]
     Active Substance: CITICOLINE
     Dosage: 1000 MG 4 ML 2X1 AMP
     Dates: start: 2020
  15. VANCOCIN [Suspect]
     Active Substance: VANCOMYCIN HYDROCHLORIDE
     Dosage: 1 G, 2X1.0
     Dates: start: 2020
  16. AMINO ACIDS\DEXTROSE\ELECTROLYTES NOS\SOYBEAN OIL [Suspect]
     Active Substance: AMINO ACIDS\DEXTROSE\ELECTROLYTES NOS\SOYBEAN OIL
     Dosage: 875 ML - 2 PCS
     Dates: start: 2020
  17. ACETAMINOPHEN [Suspect]
     Active Substance: ACETAMINOPHEN
     Dosage: 100 ML, 10 MG/ML
     Dates: start: 2020
  18. ENOXAPARIN SODIUM [Suspect]
     Active Substance: ENOXAPARIN SODIUM
     Dosage: 60 MG/0.60 ML - X1VIAL
     Route: 065
     Dates: start: 2020
  19. SODIUM CHLORIDE [Suspect]
     Active Substance: SODIUM CHLORIDE
     Dosage: 0.9 %, 100 ML ECO-BOTTLE BY PRESCRIPTION
     Dates: start: 2020
  20. MIDAZOLAM [Suspect]
     Active Substance: MIDAZOLAM
     Dosage: 5 MG - 5 5 ML - IN PERFUSION
  21. CALCIUM CHLORIDE\MAGNESIUM CHLORIDE\POTASSIUM CHLORIDE\SODIUM ACETATE\ [Suspect]
     Active Substance: CALCIUM CHLORIDE\MAGNESIUM CHLORIDE\POTASSIUM CHLORIDE\SODIUM ACETATE\SODIUM CHLORIDE
     Dosage: 500 L - ECO-VIAL - X500 ML
     Dates: start: 2020
  22. FLUCONAZOLE [Suspect]
     Active Substance: FLUCONAZOLE
     Dosage: 2 MG/1 ML - 100 ML - X 2 VIAL
     Dates: start: 2020
  23. FUROSEMIDE [Suspect]
     Active Substance: FUROSEMIDE
     Dosage: 10 MG/ML - AS PRESCRIBED
     Dates: start: 2020
  24. MELOXICAM\PRIDINOL MESILATE [Suspect]
     Active Substance: MELOXICAM\PRIDINOL MESILATE
     Dosage: 100 ML, 5 MG/ML
  25. CHLOROQUINE PHOSPHATE [Suspect]
     Active Substance: CHLOROQUINE PHOSPHATE
     Dosage: 250 MG, 2X1 TABLETS
     Dates: start: 2020
  26. DEXTROSE [Suspect]
     Active Substance: DEXTROSE MONOHYDRATE
     Dosage: 500 ML, BY PRESCRIPTION
     Route: 042
  27. AZITHROMYCIN [Suspect]
     Active Substance: AZITHROMYCIN
     Dosage: UNK
  28. AZITHROMYCIN [Suspect]
     Active Substance: AZITHROMYCIN
     Dosage: 500 MG
     Dates: start: 2020
  29. NADROPARIN CALCIUM [Suspect]
     Active Substance: NADROPARIN CALCIUM
     Dosage: 0.6 ML, 1 VIAL MG/ML AS PRESCRIBED
     Dates: start: 2020
  30. CLONIDINE HYDROCHLORIDE [Suspect]
     Active Substance: CLONIDINE HYDROCHLORIDE
     Dosage: 0.15 MG/ML - AS PRESCRIBED
     Dates: start: 2020
  31. METAMIZOLE [Suspect]
     Active Substance: METAMIZOLE
     Dosage: X 2 CAPS AMP. 500MG/ML 2 ML
     Dates: start: 2020
  32. CALCIUM GLUCONATE [Suspect]
     Active Substance: CALCIUM GLUCONATE
     Dosage: 8.94 MG/ML - 10 ML - 2X1 AMP
     Dates: start: 2020
  33. SACCHAROMYCES CEREVISIAE [Suspect]
     Active Substance: SACCHAROMYCES CEREVISIAE
     Dosage: 200 MG * 10 - 2X2 CAPS
     Dates: start: 2020
  34. METOCLOPRAMIDE HYDROCHLORIDE [Suspect]
     Active Substance: METOCLOPRAMIDE HYDROCHLORIDE
     Dosage: 10 MG - 2 ML - AS PRESCRIBED
     Dates: start: 2020

REACTIONS (12)
  - Acute respiratory failure [Fatal]
  - Encephalopathy [Fatal]
  - Brain oedema [Fatal]
  - Pulmonary oedema [Fatal]
  - Cardiovascular insufficiency [Fatal]
  - COVID-19 pneumonia [Fatal]
  - Embolism [Fatal]
  - Confusional state [Fatal]
  - Hallucination [Fatal]
  - Hypoxia [Fatal]
  - Hypertension [Fatal]
  - Tachypnoea [Fatal]

NARRATIVE: CASE EVENT DATE: 20200101
